FAERS Safety Report 5026200-8 (Version None)
Quarter: 2006Q2

REPORT INFORMATION
  Report Type: 
  Country: None (occurrence: None)
  Receive Date: 20060608
  Receipt Date: 20021107
  Transmission Date: 20061013
  Serious: No
  Sender: FDA-Public Use
  Company Number: 2002-10-2650

PATIENT
  Sex: Male

DRUGS (3)
  1. ETHYOL [Suspect]
     Indication: PROPHYLACTIC CHEMOTHERAPY
     Dosage: SUBCUTANEOUS
     Route: 058
     Dates: start: 20020807, end: 20020819
  2. RADIATION THERAPY [Suspect]
     Indication: BURKITT'S LYMPHOMA STAGE II
     Dosage: OTHER
     Dates: start: 20020807, end: 20020819
  3. CHEMOTHERAPY REGIMENS [Suspect]
     Indication: BURKITT'S LYMPHOMA STAGE II
     Dates: start: 20020807

REACTIONS (3)
  - CHILLS [None]
  - DIARRHOEA [None]
  - INFECTION [None]
